FAERS Safety Report 15863314 (Version 4)
Quarter: 2019Q1

REPORT INFORMATION
  Report Type: Spontaneous
  Country: FR (occurrence: FR)
  Receive Date: 20190124
  Receipt Date: 20190214
  Transmission Date: 20190417
  Serious: Yes (Life-Threatening)
  Sender: FDA-Public Use
  Company Number: FR-PFIZER INC-2019031744

PATIENT
  Age: 59 Year
  Sex: Female

DRUGS (8)
  1. CYTARABINE. [Concomitant]
     Active Substance: CYTARABINE
     Indication: FOLLICLE CENTRE LYMPHOMA, FOLLICULAR GRADE I, II, III
     Dosage: 4 CYCLES OF HIGH-DOSE
  2. BENDAMUSTINE [Concomitant]
     Active Substance: BENDAMUSTINE
     Indication: FOLLICLE CENTRE LYMPHOMA, FOLLICULAR GRADE I, II, III
     Dosage: 200 MG/M2, CYCLIC
  3. RITUXIMAB. [Concomitant]
     Active Substance: RITUXIMAB
     Indication: FOLLICLE CENTRE LYMPHOMA, FOLLICULAR GRADE I, II, III
  4. ETOPOSIDE. [Concomitant]
     Active Substance: ETOPOSIDE
     Indication: FOLLICLE CENTRE LYMPHOMA, FOLLICULAR GRADE I, II, III
     Dosage: UNK, CYCLIC
  5. CYTARABINE. [Concomitant]
     Active Substance: CYTARABINE
     Dosage: UNK, CYCLIC
  6. MELPHALAN. [Concomitant]
     Active Substance: MELPHALAN
     Indication: FOLLICLE CENTRE LYMPHOMA, FOLLICULAR GRADE I, II, III
     Dosage: UNK, CYCLIC
  7. OXALIPLATIN. [Suspect]
     Active Substance: OXALIPLATIN
     Indication: FOLLICLE CENTRE LYMPHOMA, FOLLICULAR GRADE I, II, III
     Dosage: 4 CYCLES
  8. DEXAMETHASONE. [Concomitant]
     Active Substance: DEXAMETHASONE
     Indication: FOLLICLE CENTRE LYMPHOMA, FOLLICULAR GRADE I, II, III
     Dosage: 4 CYCLES

REACTIONS (1)
  - Venoocclusive liver disease [Recovered/Resolved]
